FAERS Safety Report 16749450 (Version 1)
Quarter: 2019Q3

REPORT INFORMATION
  Report Type: Spontaneous
  Country: FR (occurrence: FR)
  Receive Date: 20190828
  Receipt Date: 20190828
  Transmission Date: 20191005
  Serious: Yes (Hospitalization)
  Sender: FDA-Public Use
  Company Number: FR-ACCORD-153127

PATIENT
  Age: 89 Year
  Sex: Male

DRUGS (3)
  1. ALLOPURINOL. [Suspect]
     Active Substance: ALLOPURINOL
     Indication: HYPERURICAEMIA
     Route: 048
     Dates: start: 201907, end: 201908
  2. AMOXICILLIN. [Concomitant]
     Active Substance: AMOXICILLIN
     Dates: start: 20190809
  3. CLAVULANATE POTASSIUM/CLAVULANIC ACID [Concomitant]
     Route: 048
     Dates: start: 20190812

REACTIONS (7)
  - Pyrexia [Recovering/Resolving]
  - Pruritus [Recovering/Resolving]
  - Mucosal inflammation [Recovering/Resolving]
  - Thrombocytopenia [Not Recovered/Not Resolved]
  - Rash maculo-papular [Recovering/Resolving]
  - Hepatocellular injury [Not Recovered/Not Resolved]
  - Eosinophilia [Recovering/Resolving]

NARRATIVE: CASE EVENT DATE: 201908
